FAERS Safety Report 9478015 (Version 2)
Quarter: 2013Q4

REPORT INFORMATION
  Report Type: Spontaneous
  Country: US (occurrence: US)
  Receive Date: 20130827
  Receipt Date: 20131003
  Transmission Date: 20140711
  Serious: Yes (Other)
  Sender: FDA-Public Use
  Company Number: PHEH2013US017954

PATIENT
  Sex: 0

DRUGS (2)
  1. CLOZARIL [Suspect]
     Dosage: 600 MG, QD
  2. CLOZARIL [Suspect]
     Dosage: 800 MG, QD

REACTIONS (3)
  - Psychotic disorder [Unknown]
  - Aggression [Unknown]
  - Heart rate increased [Unknown]
